FAERS Safety Report 5688296-X (Version None)
Quarter: 2008Q1

REPORT INFORMATION
  Report Type: 
  Country: None (occurrence: None)
  Receive Date: 20080331
  Receipt Date: 20080331
  Transmission Date: 20080703
  Serious: No
  Sender: FDA-Public Use
  Company Number: None

PATIENT
  Age: 49 Year
  Sex: Male
  Weight: 74.86 kg

DRUGS (1)
  1. HEPARIN SODIUM 1,000 UNITS IN DEXTROSE 5% [Suspect]
     Indication: SURGERY
     Dosage: 1000IU PER HOUR IV
     Route: 042
     Dates: start: 20080229, end: 20080304

REACTIONS (1)
  - THROMBOCYTOPENIA [None]
